FAERS Safety Report 20884444 (Version 1)
Quarter: 2022Q2

REPORT INFORMATION
  Report Type: Spontaneous
  Country: US (occurrence: None)
  Receive Date: 20220527
  Receipt Date: 20220527
  Transmission Date: 20220721
  Serious: No
  Sender: FDA-Public Use
  Company Number: None

PATIENT
  Age: 67 Year
  Sex: Male
  Weight: 83.91 kg

DRUGS (8)
  1. PAROXETINE HYDROCHLORIDE [Suspect]
     Active Substance: PAROXETINE HYDROCHLORIDE
     Indication: Insomnia
     Dosage: OTHER QUANTITY : 1 PILL;?OTHER FREQUENCY : 1 NIGHTLY;?
     Route: 048
     Dates: start: 20211217, end: 20220205
  2. PAROXETINE HYDROCHLORIDE [Suspect]
     Active Substance: PAROXETINE HYDROCHLORIDE
     Indication: Stress
  3. HAVE A PACEMAKER [Concomitant]
  4. CLOPIDOGREL [Concomitant]
     Active Substance: CLOPIDOGREL BISULFATE
  5. CARVEDILOL [Concomitant]
     Active Substance: CARVEDILOL
  6. ELIQUIS [Concomitant]
     Active Substance: APIXABAN
  7. LISINOPRIL [Concomitant]
     Active Substance: LISINOPRIL
  8. OLLY-MEN^S MULTI-VITAMINS [Concomitant]

REACTIONS (2)
  - Haematemesis [None]
  - Product use issue [None]

NARRATIVE: CASE EVENT DATE: 20211217
